FAERS Safety Report 7005299-3 (Version None)
Quarter: 2010Q3

REPORT INFORMATION
  Report Type: 
  Country: None (occurrence: None)
  Receive Date: 20100921
  Receipt Date: 20100908
  Transmission Date: 20110219
  Serious: Yes (Other)
  Sender: FDA-Public Use
  Company Number: US-ELI_LILLY_AND_COMPANY-US201009002942

PATIENT
  Age: 72 Year
  Sex: Male

DRUGS (3)
  1. EFFIENT [Suspect]
     Indication: STENT PLACEMENT
     Dosage: 60 MG, UNK
  2. EFFIENT [Suspect]
     Dosage: 10 MG, DAILY (1/D)
  3. EFFIENT [Suspect]
     Dosage: 30 MG, UNK

REACTIONS (3)
  - CORONARY ARTERY RESTENOSIS [None]
  - PLATELET FUNCTION TEST ABNORMAL [None]
  - TREATMENT NONCOMPLIANCE [None]
